FAERS Safety Report 9872765 (Version 2)
Quarter: 2014Q1

REPORT INFORMATION
  Report Type: Other
  Country: US (occurrence: US)
  Receive Date: 20140206
  Receipt Date: 20140206
  Transmission Date: 20141002
  Serious: No
  Sender: FDA-Public Use
  Company Number: US-ACORDA-ACO_100658_2013

PATIENT
  Sex: Female
  Weight: 126.98 kg

DRUGS (6)
  1. AMPYRA [Suspect]
     Indication: GAIT DISTURBANCE
     Dosage: 10 MG, Q 12 HRS
     Route: 048
     Dates: start: 20130101, end: 2013
  2. AMPYRA [Suspect]
     Dosage: 1 TABLET, QOD
     Route: 065
     Dates: start: 2013, end: 2013
  3. AMPYRA [Suspect]
     Dosage: UNK
     Route: 065
  4. VITAMIN D [Concomitant]
     Indication: MULTIPLE SCLEROSIS
     Dosage: 2000 IU, QD
     Route: 048
     Dates: start: 20130101
  5. TYSABRI [Concomitant]
     Indication: MULTIPLE SCLEROSIS
     Dosage: UNK Q30D
     Route: 042
     Dates: start: 20130101
  6. OXYBUTYNIN [Concomitant]
     Indication: MULTIPLE SCLEROSIS
     Dosage: 10 MG, QD
     Route: 048
     Dates: start: 20130101

REACTIONS (5)
  - Memory impairment [Not Recovered/Not Resolved]
  - Gait disturbance [Not Recovered/Not Resolved]
  - Fall [Not Recovered/Not Resolved]
  - Wheelchair user [Not Recovered/Not Resolved]
  - Inappropriate schedule of drug administration [Recovered/Resolved]
